FAERS Safety Report 8406170-2 (Version None)
Quarter: 2012Q2

REPORT INFORMATION
  Report Type: 
  Country: None (occurrence: None)
  Receive Date: 20120529
  Receipt Date: 20100615
  Transmission Date: 20120825
  Serious: Yes (Death, Life-Threatening)
  Sender: FDA-Public Use
  Company Number: 008079

PATIENT
  Age: 96 Year
  Sex: Male

DRUGS (3)
  1. PLETAL [Suspect]
     Indication: PRODUCT USED FOR UNKNOWN INDICATION
     Dosage: 100 MG, ORAL
     Route: 048
     Dates: start: 20091106, end: 20091115
  2. ISOSORBIDE DINITRATE [Concomitant]
  3. PURSENNID (SENNOSIDE) [Concomitant]

REACTIONS (5)
  - PNEUMONIA [None]
  - DRUG DISPENSING ERROR [None]
  - ACUTE MYOCARDIAL INFARCTION [None]
  - CARDIAC FAILURE CONGESTIVE [None]
  - ATRIAL FIBRILLATION [None]
